FAERS Safety Report 6715560-5 (Version None)
Quarter: 2010Q2

REPORT INFORMATION
  Report Type: 
  Country: None (occurrence: None)
  Receive Date: 20100507
  Receipt Date: 20100426
  Transmission Date: 20101027
  Serious: Yes (Other)
  Sender: FDA-Public Use
  Company Number: PHHY2010BR26544

PATIENT
  Age: 76 Year
  Sex: Female

DRUGS (4)
  1. DIOVAN [Suspect]
     Dosage: 320 MG, UNK
  2. CITONEURIN [Concomitant]
     Indication: PAIN
     Dosage: 1 AMPOULE A DAY
     Route: 030
     Dates: start: 20080101
  3. VYTORIN [Concomitant]
     Indication: BLOOD CHOLESTEROL
     Dosage: 1 TABLET A DAY
     Route: 048
     Dates: start: 20000101
  4. COLTRAX [Concomitant]
     Indication: PAIN
     Dosage: 1 AMPOULE A DAY
     Route: 030
     Dates: start: 20080101

REACTIONS (2)
  - BACK PAIN [None]
  - TYPE 2 DIABETES MELLITUS [None]
